FAERS Safety Report 19297328 (Version 1)
Quarter: 2021Q2

REPORT INFORMATION
  Report Type: Spontaneous
  Country: US (occurrence: US)
  Receive Date: 20210524
  Receipt Date: 20210524
  Transmission Date: 20210717
  Serious: No
  Sender: FDA-Public Use
  Company Number: US-AMGEN-USASP2021074560

PATIENT
  Sex: Female

DRUGS (3)
  1. PARSABIV [Suspect]
     Active Substance: ETELCALCETIDE HYDROCHLORIDE
     Indication: HYPERPARATHYROIDISM SECONDARY
     Dosage: 2.5 MILLIGRAM, 3 TIMES/WK
     Route: 065
     Dates: start: 202103
  2. PARSABIV [Suspect]
     Active Substance: ETELCALCETIDE HYDROCHLORIDE
     Dosage: 2.5 MILLIGRAM, 2 TIMES/WK
     Route: 065
  3. SENSIPAR [Suspect]
     Active Substance: CINACALCET HYDROCHLORIDE
     Indication: HYPERPARATHYROIDISM SECONDARY
     Dosage: 30 MILLIGRAM
     Route: 065

REACTIONS (12)
  - Sleep disorder [Unknown]
  - Eating disorder [Not Recovered/Not Resolved]
  - Blood parathyroid hormone increased [Not Recovered/Not Resolved]
  - Abdominal pain upper [Not Recovered/Not Resolved]
  - Intentional product misuse [Unknown]
  - Vomiting [Not Recovered/Not Resolved]
  - Body temperature fluctuation [Unknown]
  - Underdose [Unknown]
  - Nervousness [Unknown]
  - Anxiety [Unknown]
  - Dyspnoea [Unknown]
  - Nausea [Not Recovered/Not Resolved]
